FAERS Safety Report 24018693 (Version 1)
Quarter: 2024Q2

REPORT INFORMATION
  Report Type: Spontaneous
  Country: JP (occurrence: JP)
  Receive Date: 20240627
  Receipt Date: 20240627
  Transmission Date: 20240715
  Serious: Yes (Other)
  Sender: FDA-Public Use
  Company Number: JP-SUN PHARMACEUTICAL INDUSTRIES LTD-2024RR-453566

PATIENT
  Age: 69 Year
  Sex: Male

DRUGS (18)
  1. ZOPICLONE [Suspect]
     Active Substance: ZOPICLONE
     Indication: Depression
     Dosage: UNK
     Route: 065
  2. ZOPICLONE [Suspect]
     Active Substance: ZOPICLONE
     Indication: Insomnia
  3. LORAZEPAM [Suspect]
     Active Substance: LORAZEPAM
     Indication: Depression
     Dosage: UNK
     Route: 065
  4. LORAZEPAM [Suspect]
     Active Substance: LORAZEPAM
     Indication: Insomnia
  5. OLANZAPINE [Suspect]
     Active Substance: OLANZAPINE
     Indication: Depression
     Dosage: UNK
     Route: 065
  6. OLANZAPINE [Suspect]
     Active Substance: OLANZAPINE
     Indication: Insomnia
  7. LITHIUM [Suspect]
     Active Substance: LITHIUM
     Indication: Depression
     Dosage: UNK
     Route: 065
  8. LITHIUM [Suspect]
     Active Substance: LITHIUM
     Indication: Insomnia
  9. NITRAZEPAM [Suspect]
     Active Substance: NITRAZEPAM
     Indication: Depression
     Dosage: UNK
     Route: 065
  10. NITRAZEPAM [Suspect]
     Active Substance: NITRAZEPAM
     Indication: Insomnia
  11. ESZOPICLONE [Suspect]
     Active Substance: ESZOPICLONE
     Indication: Depression
     Dosage: UNK
     Route: 065
  12. ESZOPICLONE [Suspect]
     Active Substance: ESZOPICLONE
     Indication: Insomnia
  13. QUETIAPINE [Suspect]
     Active Substance: QUETIAPINE
     Indication: Depression
     Dosage: UNK
     Route: 065
  14. QUETIAPINE [Suspect]
     Active Substance: QUETIAPINE
     Indication: Insomnia
  15. NITRAZEPAM [Suspect]
     Active Substance: NITRAZEPAM
     Indication: Depression
  16. NITRAZEPAM [Suspect]
     Active Substance: NITRAZEPAM
     Indication: Insomnia
  17. BROTIZOLAM [Suspect]
     Active Substance: BROTIZOLAM
     Indication: Depression
  18. BROTIZOLAM [Suspect]
     Active Substance: BROTIZOLAM
     Indication: Insomnia

REACTIONS (3)
  - Pneumonitis [Unknown]
  - Somnolence [Unknown]
  - Dysphagia [Unknown]
